FAERS Safety Report 10059990 (Version 3)
Quarter: 2014Q2

REPORT INFORMATION
  Report Type: Spontaneous
  Country: JP (occurrence: JP)
  Receive Date: 20140404
  Receipt Date: 20140506
  Transmission Date: 20141212
  Serious: Yes (Other)
  Sender: FDA-Public Use
  Company Number: JP-B.I. PHARMACEUTICALS,INC./RIDGEFIELD-2014-BI-15186NB

PATIENT
  Age: 87 Year
  Sex: Female
  Weight: 53 kg

DRUGS (6)
  1. TRAZENTA [Suspect]
     Indication: DIABETES MELLITUS
     Dosage: 5 MG
     Route: 048
     Dates: start: 20130603, end: 20130930
  2. ADALAT-CR / NIFEDIPINE [Concomitant]
     Indication: ILL-DEFINED DISORDER
     Dosage: 10 MG
     Route: 048
     Dates: start: 20070730
  3. EURODIN / ESTAZOLAM [Concomitant]
     Indication: INSOMNIA
     Dosage: 2 MG
     Route: 048
     Dates: start: 20070730
  4. BASEN OD / VOGLIBOSE [Concomitant]
     Dosage: DOSE PER APPLICATION: 0.6X2
     Route: 065
     Dates: start: 20070730
  5. GLIMICRON / GLICLAZIDE [Concomitant]
     Indication: DIABETES MELLITUS
     Dosage: 30 MG
     Route: 048
     Dates: end: 20120603
  6. BASEN OD / VOGLIBOSE [Concomitant]
     Indication: DIABETES MELLITUS
     Dosage: 1.2 MG
     Route: 065

REACTIONS (1)
  - Drug-induced liver injury [Not Recovered/Not Resolved]
